FAERS Safety Report 4846297-5 (Version None)
Quarter: 2005Q4

REPORT INFORMATION
  Report Type: 
  Country: None (occurrence: None)
  Receive Date: 20051115
  Receipt Date: 20050926
  Transmission Date: 20060501
  Serious: Yes (Other)
  Sender: FDA-Public Use
  Company Number: 419187

PATIENT
  Age: 53 Year
  Sex: Female
  Weight: 78.5 kg

DRUGS (4)
  1. PEGASYS [Suspect]
     Indication: HEPATITIS C
     Dosage: 1 PER WEEK SUBCUTANEOUS
     Route: 058
     Dates: start: 20050726, end: 20050927
  2. COPEGUS [Suspect]
     Indication: HEPATITIS C
     Dosage: 1200 MG DAILY ORAL
     Route: 048
     Dates: start: 20050615, end: 20050927
  3. ADVAIR DISKUS (FLUTICASONE PROPIONATE/SALMETEROL XINAFOATE) [Concomitant]
  4. SINGULAIR [Concomitant]

REACTIONS (3)
  - DYSPNOEA [None]
  - HAEMATOCRIT DECREASED [None]
  - WHITE BLOOD CELL COUNT DECREASED [None]
